FAERS Safety Report 9702117 (Version 1)
Quarter: 2013Q4

REPORT INFORMATION
  Report Type: Spontaneous
  Country: US (occurrence: None)
  Receive Date: 20131120
  Receipt Date: 20131120
  Transmission Date: 20140711
  Serious: Yes (Hospitalization)
  Sender: FDA-Public Use
  Company Number: US-MDCO-13-00033

PATIENT
  Age: 43 Year
  Sex: Male

DRUGS (2)
  1. ANGIOMAX [Suspect]
     Indication: PRODUCT USED FOR UNKNOWN INDICATION
     Route: 042
     Dates: start: 2013, end: 2013
  2. XARELTO [Suspect]
     Indication: PRODUCT USED FOR UNKNOWN INDICATION
     Dosage: 30 MG (15 MG, 2 IN 1 D)
     Route: 048
     Dates: start: 2013

REACTIONS (4)
  - Acute myocardial infarction [None]
  - Hypercoagulation [None]
  - Pulmonary embolism [None]
  - Disease recurrence [None]
